FAERS Safety Report 8575996-7 (Version None)
Quarter: 2012Q3

REPORT INFORMATION
  Report Type: 
  Country: None (occurrence: None)
  Receive Date: 20120807
  Receipt Date: 20120220
  Transmission Date: 20120928
  Serious: Yes (Hospitalization, Other)
  Sender: FDA-Public Use
  Company Number: DE-CELGENEUS-062-20785-12061356

PATIENT
  Age: 78 Year
  Sex: Female
  Weight: 66 kg

DRUGS (10)
  1. THALIDOMIDE [Suspect]
     Indication: MULTIPLE MYELOMA
     Route: 048
     Dates: start: 20101115
  2. LOSARTAN POTASSIUM [Concomitant]
     Route: 065
  3. HYDROCHLOROTHIAZDE TAB [Concomitant]
     Route: 065
  4. RED BLOOD CELLS [Concomitant]
     Route: 065
  5. MELPHALAN HYDROCHLORIDE [Suspect]
     Indication: MULTIPLE MYELOMA
     Route: 048
     Dates: start: 20101115, end: 20110823
  6. PAMIDRONATE DISODIUM [Concomitant]
     Indication: OSTEOPOROSIS
     Route: 065
     Dates: start: 20110215
  7. THALIDOMIDE [Suspect]
     Route: 048
     Dates: start: 20110112, end: 20110217
  8. THALIDOMIDE [Suspect]
     Route: 048
     Dates: start: 20101129
  9. PREDNISONE TAB [Suspect]
     Indication: MULTIPLE MYELOMA
     Route: 048
     Dates: start: 20101115, end: 20110823
  10. HEPARIN SODIUM [Concomitant]
     Indication: ANTICOAGULANT THERAPY
     Route: 065

REACTIONS (8)
  - DRUG INTOLERANCE [None]
  - CYSTITIS [None]
  - DISORIENTATION [None]
  - ELECTROLYTE IMBALANCE [None]
  - OSTEOPOROSIS [None]
  - VAGINAL HAEMORRHAGE [None]
  - HYPONATRAEMIA [None]
  - NIGHT SWEATS [None]
